FAERS Safety Report 25104491 (Version 1)
Quarter: 2025Q1

REPORT INFORMATION
  Report Type: Spontaneous
  Country: GB (occurrence: GB)
  Receive Date: 20250321
  Receipt Date: 20250321
  Transmission Date: 20250408
  Serious: Yes (Other)
  Sender: MYLAN
  Company Number: GB-MHRA-TPP14112333C24475423YC1741865383616

PATIENT
  Age: 74 Year
  Sex: Female
  Weight: 88 kg

DRUGS (32)
  1. ATORVASTATIN [Suspect]
     Active Substance: ATORVASTATIN
     Indication: Product used for unknown indication
     Dosage: 20 MILLIGRAM, QD
     Dates: start: 20250115, end: 20250212
  2. ATORVASTATIN [Suspect]
     Active Substance: ATORVASTATIN
     Dosage: 20 MILLIGRAM, QD
     Route: 065
     Dates: start: 20250115, end: 20250212
  3. ATORVASTATIN [Suspect]
     Active Substance: ATORVASTATIN
     Dosage: 20 MILLIGRAM, QD
     Route: 065
     Dates: start: 20250115, end: 20250212
  4. ATORVASTATIN [Suspect]
     Active Substance: ATORVASTATIN
     Dosage: 20 MILLIGRAM, QD
     Dates: start: 20250115, end: 20250212
  5. AMLODIPINE [Concomitant]
     Active Substance: AMLODIPINE BESYLATE
     Indication: Ill-defined disorder
     Dosage: 1 DOSAGE FORM, QD (TAKE ONE DAILY)
     Dates: start: 20250115
  6. AMLODIPINE [Concomitant]
     Active Substance: AMLODIPINE BESYLATE
     Dosage: 1 DOSAGE FORM, QD (TAKE ONE DAILY)
     Route: 065
     Dates: start: 20250115
  7. AMLODIPINE [Concomitant]
     Active Substance: AMLODIPINE BESYLATE
     Dosage: 1 DOSAGE FORM, QD (TAKE ONE DAILY)
     Route: 065
     Dates: start: 20250115
  8. AMLODIPINE [Concomitant]
     Active Substance: AMLODIPINE BESYLATE
     Dosage: 1 DOSAGE FORM, QD (TAKE ONE DAILY)
     Dates: start: 20250115
  9. MONTELUKAST [Concomitant]
     Active Substance: MONTELUKAST
     Indication: Ill-defined disorder
     Dosage: 1 DOSAGE FORM, QD (1 EVERYDAY)
     Dates: start: 20250115
  10. MONTELUKAST [Concomitant]
     Active Substance: MONTELUKAST
     Dosage: 1 DOSAGE FORM, QD (1 EVERYDAY)
     Route: 065
     Dates: start: 20250115
  11. MONTELUKAST [Concomitant]
     Active Substance: MONTELUKAST
     Dosage: 1 DOSAGE FORM, QD (1 EVERYDAY)
     Route: 065
     Dates: start: 20250115
  12. MONTELUKAST [Concomitant]
     Active Substance: MONTELUKAST
     Dosage: 1 DOSAGE FORM, QD (1 EVERYDAY)
     Dates: start: 20250115
  13. EZETIMIBE [Concomitant]
     Active Substance: EZETIMIBE
     Indication: Ill-defined disorder
     Dosage: 1 DOSAGE FORM, QD (TAKE ONE DAILY)
     Dates: start: 20250226
  14. EZETIMIBE [Concomitant]
     Active Substance: EZETIMIBE
     Dosage: 1 DOSAGE FORM, QD (TAKE ONE DAILY)
     Route: 065
     Dates: start: 20250226
  15. EZETIMIBE [Concomitant]
     Active Substance: EZETIMIBE
     Dosage: 1 DOSAGE FORM, QD (TAKE ONE DAILY)
     Route: 065
     Dates: start: 20250226
  16. EZETIMIBE [Concomitant]
     Active Substance: EZETIMIBE
     Dosage: 1 DOSAGE FORM, QD (TAKE ONE DAILY)
     Dates: start: 20250226
  17. MOMETASONE [Concomitant]
     Active Substance: MOMETASONE
     Indication: Ill-defined disorder
     Dosage: 2 DOSAGE FORM, QD (2 SPRAYS EACH NOSTRIL EVERY DAY)
     Dates: start: 20250121
  18. MOMETASONE [Concomitant]
     Active Substance: MOMETASONE
     Dosage: 2 DOSAGE FORM, QD (2 SPRAYS EACH NOSTRIL EVERY DAY)
     Route: 045
     Dates: start: 20250121
  19. MOMETASONE [Concomitant]
     Active Substance: MOMETASONE
     Dosage: 2 DOSAGE FORM, QD (2 SPRAYS EACH NOSTRIL EVERY DAY)
     Route: 045
     Dates: start: 20250121
  20. MOMETASONE [Concomitant]
     Active Substance: MOMETASONE
     Dosage: 2 DOSAGE FORM, QD (2 SPRAYS EACH NOSTRIL EVERY DAY)
     Dates: start: 20250121
  21. PREGABALIN [Concomitant]
     Active Substance: PREGABALIN
     Indication: Ill-defined disorder
     Dosage: 1 DOSAGE FORM, QD (TAKE ONE AT NIGHT INCREASE GRADUALLY MAX 6)
     Dates: start: 20250121
  22. PREGABALIN [Concomitant]
     Active Substance: PREGABALIN
     Dosage: 1 DOSAGE FORM, QD (TAKE ONE AT NIGHT INCREASE GRADUALLY MAX 6)
     Route: 065
     Dates: start: 20250121
  23. PREGABALIN [Concomitant]
     Active Substance: PREGABALIN
     Dosage: 1 DOSAGE FORM, QD (TAKE ONE AT NIGHT INCREASE GRADUALLY MAX 6)
     Route: 065
     Dates: start: 20250121
  24. PREGABALIN [Concomitant]
     Active Substance: PREGABALIN
     Dosage: 1 DOSAGE FORM, QD (TAKE ONE AT NIGHT INCREASE GRADUALLY MAX 6)
     Dates: start: 20250121
  25. SYMBICORT [Concomitant]
     Active Substance: BUDESONIDE\FORMOTEROL FUMARATE DIHYDRATE
     Indication: Ill-defined disorder
  26. SYMBICORT [Concomitant]
     Active Substance: BUDESONIDE\FORMOTEROL FUMARATE DIHYDRATE
     Route: 065
  27. SYMBICORT [Concomitant]
     Active Substance: BUDESONIDE\FORMOTEROL FUMARATE DIHYDRATE
     Route: 065
  28. SYMBICORT [Concomitant]
     Active Substance: BUDESONIDE\FORMOTEROL FUMARATE DIHYDRATE
  29. TERBUTALINE [Concomitant]
     Active Substance: TERBUTALINE
     Indication: Ill-defined disorder
  30. TERBUTALINE [Concomitant]
     Active Substance: TERBUTALINE
     Route: 055
  31. TERBUTALINE [Concomitant]
     Active Substance: TERBUTALINE
     Route: 055
  32. TERBUTALINE [Concomitant]
     Active Substance: TERBUTALINE

REACTIONS (2)
  - Asthma [Recovering/Resolving]
  - Cough [Recovered/Resolved]
